FAERS Safety Report 10178545 (Version 2)
Quarter: 2014Q2

REPORT INFORMATION
  Report Type: Spontaneous
  Country: GB (occurrence: GB)
  Receive Date: 20140519
  Receipt Date: 20140610
  Transmission Date: 20141212
  Serious: Yes (Other)
  Sender: FDA-Public Use
  Company Number: GB-ACCORD-023704

PATIENT
  Age: 74 Year
  Sex: Female
  Weight: 60 kg

DRUGS (22)
  1. ANASTROZOLE [Suspect]
     Indication: BREAST CANCER
     Route: 048
     Dates: start: 20140110, end: 20140128
  2. IRON [Concomitant]
     Dates: start: 20140121
  3. PARACETAMOL [Concomitant]
     Dates: start: 20140121
  4. PREDNISOLONE [Concomitant]
     Dates: start: 20140121
  5. TRAMADOL [Concomitant]
     Dates: start: 20140121
  6. VENTOLIN [Concomitant]
     Dates: start: 20140121
  7. BIOTENE DRY MOUTH [Concomitant]
     Dates: start: 20140217, end: 20140224
  8. ETHAMBUTOL [Concomitant]
     Dates: start: 20120703
  9. CALCICHEW-D3 [Concomitant]
     Dates: start: 20140121
  10. SULFASALAZINE [Concomitant]
     Dates: start: 20140121
  11. ALENDRONATE SODIUM/ALENDRONIC ACID [Concomitant]
     Dates: start: 20131029
  12. ACETYLSALICYLIC ACID [Concomitant]
     Dates: start: 20140404
  13. RIFAMPICIN [Concomitant]
     Dates: start: 20120703
  14. CARBOCISTEINE/CARBOCISTEINE LYSINE/CARBOCISTEINE SODIUM [Concomitant]
     Dates: start: 20140404
  15. TIOTROPIUM/TIOTROPIUM BROMIDE [Concomitant]
     Dates: start: 20140121
  16. CLARITHROMYCIN/CLARITHROMYCIN LACTOBIONATE [Concomitant]
     Dates: start: 20120703
  17. DIORALYTE [Concomitant]
     Dates: start: 20140219
  18. DOXYCYCLINE [Concomitant]
     Dates: start: 20140130
  19. FORTISIP [Concomitant]
     Dates: start: 20140217
  20. LOPERAMIDE [Concomitant]
     Dates: start: 20140219
  21. OMEPRAZOLE [Concomitant]
     Dates: start: 20140121
  22. SERETIDE [Concomitant]
     Dates: start: 20140121

REACTIONS (3)
  - Arrhythmia [Recovered/Resolved]
  - Syncope [Recovered/Resolved]
  - Bradycardia [Recovered/Resolved]
